FAERS Safety Report 5833586-0 (Version None)
Quarter: 2008Q3

REPORT INFORMATION
  Report Type: 
  Country: None (occurrence: None)
  Receive Date: 20080804
  Receipt Date: 20080804
  Transmission Date: 20090109
  Serious: Yes (Hospitalization, Other)
  Sender: FDA-Public Use
  Company Number: None

PATIENT
  Age: 85 Year
  Sex: Female
  Weight: 64.8644 kg

DRUGS (1)
  1. LEVAQUIN [Suspect]
     Indication: URINARY TRACT INFECTION
     Dosage: 500MG AS NEEDED
     Dates: start: 20080117, end: 20080124

REACTIONS (9)
  - ARTHRALGIA [None]
  - ASTHENIA [None]
  - CHEST PAIN [None]
  - DRUG HYPERSENSITIVITY [None]
  - NECK PAIN [None]
  - PAIN IN EXTREMITY [None]
  - QUALITY OF LIFE DECREASED [None]
  - SOFT TISSUE INJURY [None]
  - VISUAL IMPAIRMENT [None]
